FAERS Safety Report 14701615 (Version 1)
Quarter: 2018Q1

REPORT INFORMATION
  Report Type: Report from Study
  Country: None (occurrence: US)
  Receive Date: 20180331
  Receipt Date: 20180331
  Transmission Date: 20180509
  Serious: Yes (Other)
  Sender: FDA-Public Use
  Company Number: US-ABBVIE-16K-163-1793703-00

PATIENT
  Sex: Male

DRUGS (1)
  1. HUMIRA [Suspect]
     Active Substance: ADALIMUMAB
     Indication: RHEUMATOID ARTHRITIS
     Route: 058
     Dates: end: 2018

REACTIONS (9)
  - Knee arthroplasty [Unknown]
  - Arthralgia [Unknown]
  - Lethargy [Unknown]
  - Muscular weakness [Unknown]
  - Sensitivity to weather change [Unknown]
  - Osteoarthritis [Unknown]
  - Exostosis [Unknown]
  - Grip strength decreased [Unknown]
  - Rheumatoid arthritis [Unknown]

NARRATIVE: CASE EVENT DATE: 2007
